FAERS Safety Report 17906680 (Version 1)
Quarter: 2020Q2

REPORT INFORMATION
  Report Type: Spontaneous
  Country: US (occurrence: US)
  Receive Date: 20200616
  Receipt Date: 20200616
  Transmission Date: 20200714
  Serious: Yes (Other)
  Sender: FDA-Public Use
  Company Number: US-ROCHE-2391695

PATIENT
  Sex: Female

DRUGS (1)
  1. ACTEMRA [Suspect]
     Active Substance: TOCILIZUMAB
     Indication: ORBITAL GRANULOMA
     Dosage: STRENGTH: 162 MG /0.9ML
     Route: 058
     Dates: start: 20180228

REACTIONS (2)
  - Pneumonia [Unknown]
  - Malaise [Unknown]
